FAERS Safety Report 4706653-2 (Version None)
Quarter: 2005Q3

REPORT INFORMATION
  Report Type: 
  Country: None (occurrence: None)
  Receive Date: 20050705
  Receipt Date: 20050623
  Transmission Date: 20060218
  Serious: Yes (Other)
  Sender: FDA-Public Use
  Company Number: US-BRISTOL-MYERS SQUIBB COMPANY-13013479

PATIENT
  Age: 12 Year
  Sex: Female
  Weight: 20 kg

DRUGS (2)
  1. ABILIFY [Suspect]
     Indication: MOOD DISORDER DUE TO A GENERAL MEDICAL CONDITION
     Dosage: 5 MG ON 15-JUN-05, AND 17-JUN-05 (LAST DOSE); DOSE SKIPPED ON 16-JUN-05
     Dates: start: 20050615, end: 20050617
  2. RITALIN-SR [Concomitant]
     Route: 048

REACTIONS (3)
  - MUSCULOSKELETAL STIFFNESS [None]
  - PHARYNGITIS STREPTOCOCCAL [None]
  - TREMOR [None]
